FAERS Safety Report 5917698-9 (Version None)
Quarter: 2008Q4

REPORT INFORMATION
  Report Type: 
  Country: None (occurrence: None)
  Receive Date: 20081009
  Receipt Date: 20081002
  Transmission Date: 20090506
  Serious: Yes (Other)
  Sender: FDA-Public Use
  Company Number: ADE2008-0327

PATIENT
  Age: 75 Year
  Sex: Male

DRUGS (7)
  1. METFORMIN HCL [Suspect]
     Indication: DIABETES MELLITUS
     Dosage: 850MG-BID-PO
     Route: 048
     Dates: start: 20070101
  2. FLUDARABINE [Suspect]
     Indication: LYMPHOMA
     Dosage: 40MG/M^2/DAY-PO
     Route: 048
     Dates: start: 20070101
  3. CLOPRIDOGREL [Concomitant]
  4. MOLSIDOMINE [Concomitant]
  5. ENALAPRIL MALEATE [Concomitant]
  6. ACETBUTOLOL [Concomitant]
  7. WARFARIN SODIUM [Concomitant]

REACTIONS (6)
  - AUTOIMMUNE NEUTROPENIA [None]
  - CONDITION AGGRAVATED [None]
  - DIABETES MELLITUS [None]
  - HEPATOMEGALY [None]
  - SPLENIC MARGINAL ZONE LYMPHOMA [None]
  - SPLENOMEGALY [None]
